FAERS Safety Report 7632898-8 (Version None)
Quarter: 2011Q3

REPORT INFORMATION
  Report Type: 
  Country: None (occurrence: None)
  Receive Date: 20110725
  Receipt Date: 20110713
  Transmission Date: 20111222
  Serious: Yes (Other)
  Sender: FDA-Public Use
  Company Number: PHEH2010US03398

PATIENT
  Age: 70 Year
  Sex: Female

DRUGS (11)
  1. PERIDEX [Concomitant]
  2. COUMADIN [Concomitant]
  3. SIMVASTATIN [Concomitant]
  4. ZOMETA [Suspect]
     Indication: MULTIPLE MYELOMA
     Dosage: 4 MG, QMO
     Route: 042
     Dates: start: 20070501
  5. CLONAZEPAM [Concomitant]
  6. REVLIMID [Concomitant]
  7. HYDROCHLOROTHIAZIDE [Concomitant]
  8. METOPROLOL TARTRATE [Concomitant]
  9. GLIPIZIDE [Concomitant]
  10. ACTOS [Concomitant]
  11. OMEPRAZOLE [Concomitant]

REACTIONS (16)
  - OSTEONECROSIS OF JAW [None]
  - PARAESTHESIA [None]
  - PAIN [None]
  - NEPHROLITHIASIS [None]
  - PANIC ATTACK [None]
  - INFECTION [None]
  - TYPE 2 DIABETES MELLITUS [None]
  - DEEP VEIN THROMBOSIS [None]
  - ANXIETY [None]
  - PULMONARY EMBOLISM [None]
  - DECREASED INTEREST [None]
  - SINUS TACHYCARDIA [None]
  - EXPOSED BONE IN JAW [None]
  - SOFT TISSUE DISORDER [None]
  - GENERAL PHYSICAL HEALTH DETERIORATION [None]
  - OSTEOLYSIS [None]
